FAERS Safety Report 8330235-7 (Version None)
Quarter: 2012Q2

REPORT INFORMATION
  Report Type: 
  Country: None (occurrence: None)
  Receive Date: 20120502
  Receipt Date: 20120425
  Transmission Date: 20120825
  Serious: Yes (Other)
  Sender: FDA-Public Use
  Company Number: US-ROXANE LABORATORIES, INC.-2012-RO-01125RO

PATIENT
  Age: 23 Month
  Sex: Female

DRUGS (3)
  1. CLARITHROMYCIN [Suspect]
     Dosage: 200 MG
  2. CLARITHROMYCIN [Suspect]
     Indication: ATYPICAL MYCOBACTERIAL INFECTION
     Dosage: 170 MG
  3. ETHAMBUTOL HYDROCHLORIDE [Suspect]
     Indication: ATYPICAL MYCOBACTERIAL INFECTION

REACTIONS (2)
  - OTOTOXICITY [None]
  - DEAFNESS NEUROSENSORY [None]
